FAERS Safety Report 12521262 (Version 1)
Quarter: 2016Q2

REPORT INFORMATION
  Report Type: Spontaneous
  Country: US (occurrence: None)
  Receive Date: 20160630
  Receipt Date: 20160630
  Transmission Date: 20160815
  Serious: Yes (Other)
  Sender: FDA-Public Use
  Company Number: None

PATIENT
  Sex: Female
  Weight: 65.32 kg

DRUGS (2)
  1. IMATINIB TABLETS 100MG SUN PHARMA [Suspect]
     Active Substance: IMATINIB
     Route: 048
     Dates: start: 201605
  2. IMATINIB TABLETS 400MG SUN PHARMA [Suspect]
     Active Substance: IMATINIB
     Indication: ACUTE LYMPHOCYTIC LEUKAEMIA
     Route: 048
     Dates: start: 201605

REACTIONS (2)
  - Swelling [None]
  - Visual impairment [None]
